FAERS Safety Report 24636604 (Version 1)
Quarter: 2024Q4

REPORT INFORMATION
  Report Type: Spontaneous
  Country: BR (occurrence: BR)
  Receive Date: 20241119
  Receipt Date: 20241119
  Transmission Date: 20250114
  Serious: Yes (Other)
  Sender: Vantive US Healthcare
  Company Number: BR-VANTIVE-2024VAN020827

PATIENT
  Age: 26 Year
  Sex: Female
  Weight: 47 kg

DRUGS (11)
  1. DIANEAL PD-2 WITH DEXTROSE [Suspect]
     Active Substance: CALCIUM CHLORIDE\DEXTROSE\MAGNESIUM CHLORIDE\SODIUM CHLORIDE\SODIUM LACTATE
     Dosage: 2 BAGS PER DAY
     Route: 033
     Dates: start: 20221103, end: 20241030
  2. DIANEAL PD-2 WITH DEXTROSE [Suspect]
     Active Substance: CALCIUM CHLORIDE\DEXTROSE\MAGNESIUM CHLORIDE\SODIUM CHLORIDE\SODIUM LACTATE
     Dosage: 2 BAGS PER DAY (DOSE REINTRODUCED)
     Route: 033
     Dates: start: 20241104
  3. LOSARTAN [Concomitant]
     Active Substance: LOSARTAN
     Dosage: 50 MG 2 A DAY
     Route: 065
  4. SPIRONOLACTONE [Concomitant]
     Active Substance: SPIRONOLACTONE
     Dosage: 25 MG 1 A DAY
     Route: 065
  5. Cardiol [Concomitant]
     Dosage: 25 MG 2 A DAY
     Route: 065
  6. HYDRALAZINE [Concomitant]
     Active Substance: HYDRALAZINE HYDROCHLORIDE
     Dosage: 50 MG 1 EVERY 8HOURS
     Route: 065
  7. ATORVASTATIN [Concomitant]
     Active Substance: ATORVASTATIN
     Dosage: 40 MG 1 PER DAY
     Route: 065
  8. CALCIUM CARBONATE [Concomitant]
     Active Substance: CALCIUM CARBONATE
     Dosage: 1250 MG 1 PER DAY
     Route: 065
  9. Reverage [Concomitant]
     Dosage: 800 MG 9 PER DAY
     Route: 065
  10. Alfaepoetina [Concomitant]
     Dosage: 4000 MG, 4 TIMES PER WEEK
     Route: 065
  11. SLOW K [Concomitant]
     Active Substance: POTASSIUM CHLORIDE
     Dosage: 600 MG, 3 PER DAY
     Route: 065

REACTIONS (8)
  - Pulmonary oedema [Recovered/Resolved]
  - Fatigue [Recovered/Resolved]
  - Swelling face [Recovered/Resolved]
  - Peripheral swelling [Recovered/Resolved]
  - Carditis [Recovered/Resolved]
  - Therapy interrupted [Recovered/Resolved]
  - Device issue [Recovered/Resolved]
  - Dyspnoea [Recovered/Resolved]

NARRATIVE: CASE EVENT DATE: 20241027
